FAERS Safety Report 4657668-4 (Version None)
Quarter: 2005Q2

REPORT INFORMATION
  Report Type: 
  Country: None (occurrence: None)
  Receive Date: 20050510
  Receipt Date: 20050310
  Transmission Date: 20051028
  Serious: Yes (Death, Hospitalization)
  Sender: FDA-Public Use
  Company Number: US-BRISTOL-MYERS SQUIBB COMPANY-12893491

PATIENT
  Age: 84 Year
  Sex: Female
  Weight: 45 kg

DRUGS (18)
  1. CETUXIMAB [Suspect]
     Indication: NON-SMALL CELL LUNG CANCER
     Dosage: 4316MG TOTAL THIS COURSE
     Route: 042
     Dates: start: 20050221, end: 20050221
  2. PACLITAXEL [Suspect]
     Indication: NON-SMALL CELL LUNG CANCER
     Dosage: 624MG TOTAL THIS COURSE
     Route: 042
     Dates: start: 20050214, end: 20050214
  3. CARBOPLATIN [Suspect]
     Indication: NON-SMALL CELL LUNG CANCER
     Dosage: AUC 6. 1087MG TOTAL THIS COURSE
     Route: 042
     Dates: start: 20050214, end: 20050214
  4. RADIATION THERAPY [Suspect]
     Indication: NON-SMALL CELL LUNG CANCER
     Dosage: 63GY/35. 6200CGY TOTAL DOSE THIS COURSE
  5. LORTAB [Concomitant]
     Dosage: 5-10MG Q4-6H
  6. PROTONIX [Concomitant]
  7. OYSTER SHELL CALCIUM [Concomitant]
  8. AMBIEN [Concomitant]
  9. MULTI-VITAMIN [Concomitant]
  10. TUSSIONEX [Concomitant]
  11. MAGNESIUM OXIDE [Concomitant]
  12. LOVENOX [Concomitant]
     Route: 058
  13. ATIVAN [Concomitant]
     Route: 042
  14. POTASSIUM CHLORIDE [Concomitant]
  15. IMODIUM [Concomitant]
  16. MAXIPIME [Concomitant]
     Route: 042
  17. VANCOMYCIN [Concomitant]
     Route: 042
  18. CANCIDAS [Concomitant]
     Route: 042

REACTIONS (26)
  - ACTIVITIES OF DAILY LIVING IMPAIRED [None]
  - ANAEMIA [None]
  - ARRHYTHMIA [None]
  - BLOOD CALCIUM DECREASED [None]
  - BLOOD MAGNESIUM DECREASED [None]
  - BLOOD SODIUM DECREASED [None]
  - CONFUSIONAL STATE [None]
  - DYSPNOEA [None]
  - FATIGUE [None]
  - FEBRILE NEUTROPENIA [None]
  - HAEMOGLOBIN DECREASED [None]
  - HAEMORRHAGE [None]
  - HYPOMAGNESAEMIA [None]
  - HYPOXIA [None]
  - HYPOXIC ENCEPHALOPATHY [None]
  - MALIGNANT NEOPLASM PROGRESSION [None]
  - MYOCARDIAL INFARCTION [None]
  - NEUTROPHIL COUNT DECREASED [None]
  - PLEURAL EFFUSION [None]
  - PRODUCTIVE COUGH [None]
  - PULMONARY MASS [None]
  - RADIATION PNEUMONITIS [None]
  - SINUS TACHYCARDIA [None]
  - TACHYCARDIA [None]
  - VENTRICULAR EXTRASYSTOLES [None]
  - WHITE BLOOD CELL COUNT INCREASED [None]
